FAERS Safety Report 9430423 (Version 2)
Quarter: 2013Q3

REPORT INFORMATION
  Report Type: Spontaneous
  Country: JP (occurrence: JP)
  Receive Date: 20130730
  Receipt Date: 20130819
  Transmission Date: 20140515
  Serious: Yes (Other)
  Sender: FDA-Public Use
  Company Number: JP-GLAXOSMITHKLINE-B0908564A

PATIENT
  Age: 41 Year
  Sex: Female

DRUGS (4)
  1. SERETIDE (50MCG/500MCG) [Suspect]
     Indication: ASTHMA
     Dosage: 500MCG TWICE PER DAY
     Route: 055
     Dates: start: 20100616, end: 20130613
  2. ZYRTEC [Concomitant]
     Dosage: 10MG PER DAY
     Route: 048
  3. SINGULAIR [Concomitant]
     Dosage: 10MG PER DAY
     Route: 048
  4. THEODUR [Concomitant]
     Dosage: 100MG PER DAY
     Route: 048
     Dates: end: 20130613

REACTIONS (5)
  - Adrenal suppression [Recovering/Resolving]
  - Adrenal insufficiency [Unknown]
  - Dermatitis atopic [Unknown]
  - Hypokalaemia [Unknown]
  - Blood glucose increased [Unknown]
